FAERS Safety Report 9878428 (Version 2)
Quarter: 2014Q1

REPORT INFORMATION
  Report Type: Spontaneous
  Country: None (occurrence: US)
  Receive Date: 20140206
  Receipt Date: 20140206
  Transmission Date: 20141002
  Serious: No
  Sender: FDA-Public Use
  Company Number: US-ALLERGAN-1311404US

PATIENT
  Age: 61 Year
  Sex: Female

DRUGS (4)
  1. BOTOX [Suspect]
     Indication: MIGRAINE
     Dosage: UNK, SINGLE
     Dates: start: 201306, end: 201306
  2. PROPRANOLOL [Concomitant]
     Indication: MIGRAINE PROPHYLAXIS
     Dosage: 20 MG, BID
     Route: 048
  3. ARMOUR THYROID [Concomitant]
     Indication: THYROID DISORDER
     Dosage: 60 MG, QD
     Route: 048
  4. EXCEDRIN MIGRAINE [Concomitant]
     Indication: MIGRAINE
     Dosage: AT NIGHT AND AS NEEDED

REACTIONS (7)
  - Choking sensation [Recovering/Resolving]
  - Mastication disorder [Recovering/Resolving]
  - Muscle disorder [Recovering/Resolving]
  - Local swelling [Recovering/Resolving]
  - Dysphagia [Recovering/Resolving]
  - Muscular weakness [Recovering/Resolving]
  - Neck pain [Recovering/Resolving]
